FAERS Safety Report 7738723-9 (Version None)
Quarter: 2011Q3

REPORT INFORMATION
  Report Type: 
  Country: None (occurrence: None)
  Receive Date: 20110908
  Receipt Date: 20110902
  Transmission Date: 20111222
  Serious: Yes (Hospitalization, Other)
  Sender: FDA-Public Use
  Company Number: PR-PFIZER INC-2005022509

PATIENT
  Age: 40 Year
  Sex: Male

DRUGS (1)
  1. BEXTRA [Suspect]
     Dosage: 20MG

REACTIONS (2)
  - CONVULSION [None]
  - SKIN REACTION [None]
